FAERS Safety Report 5223393-4 (Version None)
Quarter: 2007Q1

REPORT INFORMATION
  Report Type: 
  Country: None (occurrence: None)
  Receive Date: 20070124
  Receipt Date: 20070108
  Transmission Date: 20070707
  Serious: Yes (Hospitalization)
  Sender: FDA-Public Use
  Company Number: 6028905

PATIENT
  Age: 53 Year
  Sex: Female

DRUGS (1)
  1. LEVOTHYROXINE SODIUM [Suspect]
     Indication: HORMONE REPLACEMENT THERAPY
     Dosage: 100 MCG (100 MCG, 1 D) ORAL
     Route: 048

REACTIONS (15)
  - AGGRESSION [None]
  - BLOOD THYROID STIMULATING HORMONE INCREASED [None]
  - BRADYCARDIA [None]
  - DELUSION [None]
  - DRUG WITHDRAWAL SYNDROME [None]
  - FLIGHT OF IDEAS [None]
  - INSOMNIA [None]
  - IRRITABILITY [None]
  - LOGORRHOEA [None]
  - MANIA [None]
  - PSYCHOMOTOR HYPERACTIVITY [None]
  - SELF ESTEEM INFLATED [None]
  - SPEECH DISORDER [None]
  - THYROXINE FREE DECREASED [None]
  - TREATMENT NONCOMPLIANCE [None]
